FAERS Safety Report 15270933 (Version 1)
Quarter: 2018Q3

REPORT INFORMATION
  Report Type: Spontaneous
  Country: US (occurrence: US)
  Receive Date: 20180813
  Receipt Date: 20180813
  Transmission Date: 20181010
  Serious: No
  Sender: FDA-Public Use
  Company Number: US-SA-2018SA221124

PATIENT
  Age: 38 Year
  Sex: Female

DRUGS (1)
  1. AUBAGIO [Suspect]
     Active Substance: TERIFLUNOMIDE
     Indication: MULTIPLE SCLEROSIS
     Dosage: 14 MG, QD
     Route: 048
     Dates: start: 20170427

REACTIONS (7)
  - Muscle spasms [Recovered/Resolved]
  - Gastroenteritis viral [Recovered/Resolved]
  - Mobility decreased [Recovered/Resolved]
  - Malaise [Recovered/Resolved]
  - Drug dose omission [Unknown]
  - Back pain [Recovered/Resolved]
  - Fall [Recovered/Resolved]
